FAERS Safety Report 21250414 (Version 1)
Quarter: 2022Q3

REPORT INFORMATION
  Report Type: Spontaneous
  Country: US (occurrence: None)
  Receive Date: 20220824
  Receipt Date: 20220824
  Transmission Date: 20221027
  Serious: No
  Sender: FDA-Public Use
  Company Number: 2022A285330

PATIENT
  Sex: Female

DRUGS (1)
  1. BEVESPI AEROSPHERE [Suspect]
     Active Substance: FORMOTEROL FUMARATE\GLYCOPYRROLATE
     Dosage: 2 PUFFS, TWO TIMES A DAY
     Route: 055

REACTIONS (5)
  - Sinus disorder [Unknown]
  - Pain [Unknown]
  - Nausea [Unknown]
  - Muscle spasms [Unknown]
  - Intentional device misuse [Unknown]
